FAERS Safety Report 8052027-9 (Version None)
Quarter: 2012Q1

REPORT INFORMATION
  Report Type: 
  Country: None (occurrence: None)
  Receive Date: 20120112
  Receipt Date: 20111228
  Transmission Date: 20120608
  Serious: No
  Sender: FDA-Public Use
  Company Number: SPI201100344

PATIENT
  Age: 25 Year
  Sex: Female

DRUGS (1)
  1. AMITIZA [Suspect]
     Indication: CONSTIPATION
     Dosage: 24 MCG, BID, ORAL
     Route: 048
     Dates: start: 20100101

REACTIONS (3)
  - DYSPNOEA [None]
  - CHEST PAIN [None]
  - NAUSEA [None]
